FAERS Safety Report 14922072 (Version 2)
Quarter: 2020Q1

REPORT INFORMATION
  Report Type: Report from Study
  Country: None (occurrence: US)
  Receive Date: 20180522
  Receipt Date: 20200211
  Transmission Date: 20200409
  Serious: Yes (Other)
  Sender: FDA-Public Use
  Company Number: US-ABBVIE-18K-163-2234985-00

PATIENT
  Age: 60 Year
  Sex: Female
  Weight: 127.12 kg

DRUGS (1)
  1. HUMIRA [Suspect]
     Active Substance: ADALIMUMAB
     Indication: RHEUMATOID ARTHRITIS
     Route: 058
     Dates: start: 2017, end: 20180111

REACTIONS (4)
  - Malaise [Unknown]
  - Uterine polyp [Recovered/Resolved]
  - Cervical polyp [Recovered/Resolved]
  - Oral surgery [Recovered/Resolved]

NARRATIVE: CASE EVENT DATE: 2018
